FAERS Safety Report 17235679 (Version 1)
Quarter: 2020Q1

REPORT INFORMATION
  Report Type: Report from Study
  Country: ES (occurrence: ES)
  Receive Date: 20200106
  Receipt Date: 20200106
  Transmission Date: 20200409
  Serious: Yes (Hospitalization)
  Sender: FDA-Public Use
  Company Number: ES-TEVA-2019-ES-1161939

PATIENT
  Age: 84 Year
  Sex: Male

DRUGS (6)
  1. ALDOCUMAR 1 MG COMPRIMIDOS, 40 COMPRIMIDOS [Concomitant]
     Active Substance: WARFARIN SODIUM
     Indication: ATRIAL FIBRILLATION
     Route: 048
     Dates: start: 20140424, end: 20180629
  2. ENALAPRIL MALEATO (2142MA) [Interacting]
     Active Substance: ENALAPRIL MALEATE
     Indication: HYPERTENSION
     Dosage: 20 MG
     Route: 048
     Dates: start: 20130221, end: 20180629
  3. METFORMINA (1359A) [Concomitant]
     Active Substance: METFORMIN HYDROCHLORIDE
     Indication: DIABETES MELLITUS
     Dosage: 2.55 GM
     Route: 048
     Dates: end: 20180629
  4. DOXAZOSINA (2387A) [Suspect]
     Active Substance: DOXAZOSIN MESYLATE
     Indication: HYPERTENSION
     Dosage: 4 MG
     Route: 048
     Dates: start: 20170706, end: 20180629
  5. BISOPROLOL (2328A) [Interacting]
     Active Substance: BISOPROLOL
     Indication: HYPERTENSION
     Dosage: 5 MG
     Route: 048
     Dates: start: 20140416, end: 20180629
  6. FUROSEMIDA (1615A) [Interacting]
     Active Substance: FUROSEMIDE
     Indication: HYPERTENSION
     Dosage: 80 MG
     Route: 048
     Dates: start: 20140527, end: 20180629

REACTIONS (2)
  - Acute kidney injury [Recovered/Resolved]
  - Drug interaction [Unknown]

NARRATIVE: CASE EVENT DATE: 20180629
